FAERS Safety Report 6568302-0 (Version None)
Quarter: 2010Q1

REPORT INFORMATION
  Report Type: 
  Country: None (occurrence: None)
  Receive Date: 20100203
  Receipt Date: 20100128
  Transmission Date: 20100710
  Serious: Yes (Hospitalization, Other)
  Sender: FDA-Public Use
  Company Number: ES-PFIZER INC-2009245701

PATIENT
  Age: 40 Year
  Sex: Female

DRUGS (2)
  1. CHAMPIX [Suspect]
     Indication: SMOKING CESSATION THERAPY
     Dosage: UNK MG, UNK
     Route: 048
     Dates: start: 20090503, end: 20090521
  2. CHAMPIX [Suspect]
     Dosage: 1 MG, UNK

REACTIONS (3)
  - ASCITES [None]
  - HEPATITIS TOXIC [None]
  - HEPATOMEGALY [None]
